FAERS Safety Report 9764346 (Version 3)
Quarter: 2014Q1

REPORT INFORMATION
  Report Type: Spontaneous
  Country: JP (occurrence: JP)
  Receive Date: 20131217
  Receipt Date: 20140227
  Transmission Date: 20141002
  Serious: Yes (Disabling, Other)
  Sender: FDA-Public Use
  Company Number: JP-009507513-1312JPN006586

PATIENT
  Age: 62 Year
  Sex: Female
  Weight: 49 kg

DRUGS (31)
  1. GASTER D [Suspect]
     Indication: PROPHYLAXIS AGAINST GASTROINTESTINAL ULCER
     Dosage: 20 MG, BID
     Route: 048
     Dates: start: 20101014, end: 20101119
  2. EXCEGRAN [Suspect]
     Indication: CONVULSION PROPHYLAXIS
     Dosage: 100 MG, BID
     Route: 048
     Dates: start: 20101013, end: 20101119
  3. GASDOCK [Suspect]
     Indication: PROPHYLAXIS
     Dosage: 20 MG, QD
     Route: 041
     Dates: start: 20101026
  4. GASDOCK [Suspect]
     Dosage: 20 TO 40 MG DAILY,UNK
     Route: 041
     Dates: start: 20101026, end: 20101028
  5. ASPIRIN [Concomitant]
     Indication: CEREBRAL INFARCTION
     Dosage: UNK, POWDER
     Dates: start: 20101028, end: 20101102
  6. ASPIRIN [Concomitant]
     Indication: CEREBRAL INFARCTION
  7. ENTERONON R [Concomitant]
     Indication: ABDOMINAL SYMPTOM
     Dosage: UNK,POWDER
     Dates: start: 20101028
  8. LAC-B [Concomitant]
     Indication: ABDOMINAL SYMPTOM
     Dosage: UNK
     Dates: start: 20101028, end: 20101201
  9. MEIACT [Concomitant]
     Indication: INFECTION PROPHYLAXIS
     Dosage: UNK
     Dates: start: 20101029, end: 20101102
  10. CRAVIT [Concomitant]
     Indication: CONJUNCTIVITIS
     Dosage: UNK
     Route: 047
     Dates: start: 20101029, end: 20111207
  11. AZULEN S (A Z) [Concomitant]
     Indication: CONJUNCTIVITIS
     Dosage: UNK
     Route: 047
     Dates: start: 20101029, end: 20101116
  12. NOVOLIN R [Concomitant]
     Indication: DIABETES MELLITUS MANAGEMENT
     Dosage: UNK
     Dates: start: 20101028, end: 20101221
  13. GLYCEREB [Concomitant]
     Indication: BRAIN OEDEMA
     Dosage: UNK
     Dates: start: 20101013, end: 20101125
  14. DECADRON PHOSPHATE INJECTION [Concomitant]
     Indication: BRAIN OEDEMA
     Dosage: UNK
     Dates: start: 20101013, end: 20101121
  15. DEXTRAN (LOW MOLECULAR DEXTRAN L) [Concomitant]
     Indication: FLUID REPLACEMENT
     Dosage: UNK
     Dates: start: 20101020, end: 20101028
  16. SEFMAZON [Concomitant]
     Indication: INFECTION PROPHYLAXIS
     Dosage: UNK
     Dates: start: 20101020, end: 20110101
  17. SEFMAZON [Concomitant]
     Indication: INFECTION
  18. VEEN 3G [Concomitant]
     Indication: FLUID REPLACEMENT
     Dosage: UNK
     Dates: start: 20101021, end: 20101104
  19. ALEVIATIN [Concomitant]
     Indication: CONVULSION PROPHYLAXIS
     Dosage: UNK
     Dates: start: 20101026, end: 20101028
  20. VEEN F [Concomitant]
     Indication: FLUID REPLACEMENT
     Dosage: UNK
     Dates: start: 20101026, end: 20101124
  21. ADONA [Concomitant]
     Indication: HAEMORRHAGE PROPHYLAXIS
     Dosage: UNK
     Dates: start: 20101026, end: 20101208
  22. PRIMPERAN [Concomitant]
     Indication: PROPHYLAXIS OF NAUSEA AND VOMITING
     Dosage: UNK
     Dates: start: 20101026, end: 20101027
  23. RADICUT [Concomitant]
     Indication: CEREBRAL INFARCTION
     Dosage: UNK
     Dates: start: 20101026, end: 20101106
  24. VEEN D [Concomitant]
     Indication: FLUID REPLACEMENT
     Dosage: UNK
     Dates: start: 20101027, end: 20101217
  25. CITICOLINE [Concomitant]
     Indication: HEMIPLEGIA
     Dosage: UNK
     Dates: start: 20101027, end: 20110105
  26. BFLUID [Concomitant]
     Indication: FLUID REPLACEMENT
     Dosage: UNK
     Dates: start: 20101027, end: 20110105
  27. VITAMEDIN INTRAVENOUS [Concomitant]
     Indication: VITAMIN SUPPLEMENTATION
     Dosage: UNK
     Dates: start: 20101028, end: 20110105
  28. ASCORBIC ACID [Concomitant]
     Indication: VITAMIN SUPPLEMENTATION
     Dosage: UNK
     Dates: start: 20101028, end: 20110105
  29. ACTOSIN [Concomitant]
     Indication: ULCER
     Dosage: UNK
     Dates: start: 20101117
  30. FUNGIZONE [Concomitant]
     Indication: FUNGAL INFECTION
     Dosage: UNK
     Dates: start: 20101116, end: 20101229
  31. ZADITEN [Concomitant]
     Indication: EYE DISCHARGE
     Dosage: UNK
     Dates: start: 20101116, end: 20101201

REACTIONS (2)
  - Stevens-Johnson syndrome [Unknown]
  - Off label use [Unknown]
